FAERS Safety Report 5802004-0 (Version None)
Quarter: 2008Q3

REPORT INFORMATION
  Report Type: 
  Country: None (occurrence: None)
  Receive Date: 20080707
  Receipt Date: 20080626
  Transmission Date: 20090109
  Serious: Yes (Hospitalization)
  Sender: FDA-Public Use
  Company Number: JP-PFIZER INC-2008051627

PATIENT
  Sex: Female
  Weight: 54 kg

DRUGS (7)
  1. FARMORUBICIN [Suspect]
     Indication: BREAST CANCER
     Route: 042
     Dates: start: 20080612, end: 20080612
  2. FLUOROURACIL [Suspect]
     Indication: BREAST CANCER
     Route: 042
     Dates: start: 20080612, end: 20080612
  3. ENDOXAN [Suspect]
     Indication: BREAST CANCER
     Route: 042
     Dates: start: 20080612, end: 20080612
  4. SEROTONE [Suspect]
     Indication: VOMITING
     Route: 042
     Dates: start: 20080612, end: 20080612
  5. SEROTONE [Suspect]
     Route: 048
     Dates: start: 20080612, end: 20080613
  6. DECADRON [Suspect]
     Indication: VOMITING
     Route: 042
     Dates: start: 20080612, end: 20080612
  7. DECADRON [Suspect]
     Route: 048
     Dates: start: 20080612, end: 20080613

REACTIONS (4)
  - CARDIAC TAMPONADE [None]
  - INFECTION [None]
  - NEUTROPENIA [None]
  - RHABDOMYOLYSIS [None]
